FAERS Safety Report 16345738 (Version 1)
Quarter: 2019Q2

REPORT INFORMATION
  Report Type: Spontaneous
  Country: CN (occurrence: CN)
  Receive Date: 20190523
  Receipt Date: 20190523
  Transmission Date: 20190711
  Serious: Yes (Other)
  Sender: FDA-Public Use
  Company Number: CN-ROCHE-2319984

PATIENT
  Age: 62 Year
  Sex: Male

DRUGS (5)
  1. FLUOROURACIL. [Concomitant]
     Active Substance: FLUOROURACIL
     Indication: TUMOUR ULCERATION
     Route: 065
     Dates: start: 20141027, end: 201608
  2. BEVACIZUMAB. [Suspect]
     Active Substance: BEVACIZUMAB
     Indication: TUMOUR ULCERATION
     Route: 065
     Dates: start: 20141027, end: 201608
  3. IRINOTECAN [Concomitant]
     Active Substance: IRINOTECAN
     Indication: TUMOUR ULCERATION
     Route: 065
     Dates: start: 20160129, end: 201604
  4. OXALIPLATIN. [Concomitant]
     Active Substance: OXALIPLATIN
     Indication: TUMOUR ULCERATION
     Route: 065
     Dates: start: 20141027, end: 201502
  5. CALCIUM FOLINATE [Concomitant]
     Active Substance: LEUCOVORIN CALCIUM
     Indication: TUMOUR ULCERATION
     Route: 065
     Dates: start: 20160129, end: 201604

REACTIONS (2)
  - Hypoaesthesia [Unknown]
  - Bone marrow failure [Unknown]
